FAERS Safety Report 4544487-2 (Version None)
Quarter: 2004Q4

REPORT INFORMATION
  Report Type: 
  Country: None (occurrence: None)
  Receive Date: 20041230
  Receipt Date: 20041216
  Transmission Date: 20050328
  Serious: Yes (Other)
  Sender: FDA-Public Use
  Company Number: 200410620BCA

PATIENT
  Age: 19 Year
  Sex: Female

DRUGS (1)
  1. GAMIMUNE N 10% [Suspect]
     Dosage: 60 G, INTRAVENOUS
     Route: 042
     Dates: start: 20030418

REACTIONS (4)
  - COUGH [None]
  - DYSPNOEA [None]
  - PARAESTHESIA MUCOSAL [None]
  - THROAT IRRITATION [None]
